FAERS Safety Report 5794695-8 (Version None)
Quarter: 2008Q2

REPORT INFORMATION
  Report Type: 
  Country: None (occurrence: None)
  Receive Date: 20080630
  Receipt Date: 20080624
  Transmission Date: 20081010
  Serious: Yes (Other)
  Sender: FDA-Public Use
  Company Number: JP-MERCK-0710USA02254

PATIENT
  Age: 62 Year
  Sex: Male

DRUGS (6)
  1. ZETIA [Suspect]
     Indication: HYPERCHOLESTEROLAEMIA
     Route: 048
     Dates: start: 20070710, end: 20071002
  2. LIPITOR [Concomitant]
     Route: 065
     Dates: start: 20050124, end: 20071002
  3. FLAVOXATE HYDROCHLORIDE [Concomitant]
     Route: 065
     Dates: start: 20041129
  4. EVIPROSTAT [Concomitant]
     Route: 065
     Dates: start: 20041129
  5. CANDESARTAN CILEXETIL [Concomitant]
     Route: 065
     Dates: start: 20041129
  6. NIFEDIPINE [Concomitant]
     Route: 065

REACTIONS (1)
  - HEPATIC FUNCTION ABNORMAL [None]
